FAERS Safety Report 8620444-1 (Version None)
Quarter: 2012Q3

REPORT INFORMATION
  Report Type: 
  Country: None (occurrence: None)
  Receive Date: 20120820
  Receipt Date: 20120820
  Transmission Date: 20120928
  Serious: No
  Sender: FDA-Public Use
  Company Number: None

PATIENT
  Sex: Female
  Weight: 77.1115 kg

DRUGS (1)
  1. ASPIRIN [Suspect]
     Indication: ARTHRITIS
     Dosage: BOTTLE RETURNED TO BAYER FOR ANALIS - 1 TABLET EVERY 4 HOURS WHEN NEEDED FOR ARTHRITIS PAIN

REACTIONS (2)
  - PRODUCT SOLUBILITY ABNORMAL [None]
  - MEDICATION RESIDUE [None]
